FAERS Safety Report 7878507-4 (Version None)
Quarter: 2011Q4

REPORT INFORMATION
  Report Type: 
  Country: None (occurrence: None)
  Receive Date: 20111014
  Receipt Date: 20110324
  Transmission Date: 20120403
  Serious: Yes (Other)
  Sender: FDA-Public Use
  Company Number: 1000019507

PATIENT
  Age: 49 Year
  Sex: Female

DRUGS (2)
  1. LEXAPRO [Suspect]
     Indication: DEPRESSION
     Dosage: 10 MG (10 MG, 1 IN 1 D), ORAL
     Route: 048
     Dates: start: 20090101
  2. LEXAPRO [Suspect]
     Indication: ANXIETY
     Dosage: 10 MG (10 MG, 1 IN 1 D), ORAL
     Route: 048
     Dates: start: 20090101

REACTIONS (4)
  - SUICIDAL IDEATION [None]
  - DEPRESSION [None]
  - NIGHT SWEATS [None]
  - ANXIETY [None]
